FAERS Safety Report 5454791-1 (Version None)
Quarter: 2007Q3

REPORT INFORMATION
  Report Type: 
  Country: None (occurrence: None)
  Receive Date: 20070917
  Receipt Date: 20070906
  Transmission Date: 20080115
  Serious: No
  Sender: FDA-Public Use
  Company Number: US-BOEHRINGER INGELHEIM PHARMACEUTICALS, INC.-2007-BP-19362BP

PATIENT
  Age: 30 Year
  Sex: Female

DRUGS (2)
  1. VIRAMUNE [Suspect]
     Indication: HIV INFECTION
  2. COMBIVIR [Suspect]
     Route: 048

REACTIONS (1)
  - LIVER FUNCTION TEST ABNORMAL [None]
